APPROVED DRUG PRODUCT: TRIPTODUR KIT
Active Ingredient: TRIPTORELIN PAMOATE
Strength: EQ 22.5MG BASE/VIAL
Dosage Form/Route: FOR SUSPENSION, EXTENDED RELEASE;INTRAMUSCULAR
Application: N208956 | Product #001
Applicant: AZURITY PHARMACEUTICALS INC
Approved: Jun 29, 2017 | RLD: Yes | RS: Yes | Type: RX

PATENTS:
Patent 10166181 | Expires: Jun 30, 2029